FAERS Safety Report 16978218 (Version 1)
Quarter: 2019Q4

REPORT INFORMATION
  Report Type: Spontaneous
  Country: FR (occurrence: FR)
  Receive Date: 20191031
  Receipt Date: 20191031
  Transmission Date: 20200122
  Serious: Yes (Hospitalization, Other)
  Sender: FDA-Public Use
  Company Number: FR-AUROBINDO-AUR-APL-2019-069759

PATIENT
  Age: 60 Year
  Sex: Female

DRUGS (6)
  1. FIRDAPSE [Suspect]
     Active Substance: AMIFAMPRIDINE
     Indication: MYASTHENIC SYNDROME
     Dosage: 70 MILLIGRAM, ONCE A DAY
     Route: 048
     Dates: start: 20101118
  2. CELLCEPT [Suspect]
     Active Substance: MYCOPHENOLATE MOFETIL\MYCOPHENOLATE MOFETIL HYDROCHLORIDE
     Indication: MYASTHENIC SYNDROME
     Dosage: 1500 MILLIGRAM, ONCE A DAY
     Route: 065
     Dates: start: 20090116
  3. MOTILIUM [Concomitant]
     Active Substance: DOMPERIDONE
     Indication: DIZZINESS
     Dosage: 30 MILLIGRAM, PRN
     Route: 048
     Dates: start: 2007
  4. MESTINON [Suspect]
     Active Substance: PYRIDOSTIGMINE BROMIDE
     Indication: MYASTHENIC SYNDROME
     Dosage: 420 MILLIGRAM ONCE A DAY
     Route: 065
     Dates: start: 200712
  5. SOLUPRED (PREDNISOLONE) [Suspect]
     Active Substance: PREDNISOLONE
     Indication: BRONCHIAL DISORDER
     Dosage: 40 MILLIGRAM, ONCE A DAY
     Route: 048
     Dates: start: 200901
  6. AMOXICILLIN. [Suspect]
     Active Substance: AMOXICILLIN
     Indication: LUNG DISORDER
     Dosage: 4 GRAM, ONCE A DAY
     Route: 048
     Dates: start: 201101

REACTIONS (1)
  - Actinomycosis [Recovered/Resolved with Sequelae]

NARRATIVE: CASE EVENT DATE: 20110509
